FAERS Safety Report 6715709-4 (Version None)
Quarter: 2010Q2

REPORT INFORMATION
  Report Type: 
  Country: None (occurrence: None)
  Receive Date: 20100507
  Receipt Date: 20100504
  Transmission Date: 20101027
  Serious: Yes (Other)
  Sender: FDA-Public Use
  Company Number: US-SANOFI-AVENTIS-2010SA018498

PATIENT
  Age: 55 Year
  Sex: Female

DRUGS (5)
  1. PLAVIX [Suspect]
     Route: 048
     Dates: start: 20010101
  2. PLAVIX [Suspect]
     Route: 048
     Dates: start: 20010101
  3. ECOTRIN [Concomitant]
     Route: 048
     Dates: start: 20010101
  4. PRAVACHOL [Concomitant]
  5. CARDIZEM [Concomitant]

REACTIONS (5)
  - BRADYARRHYTHMIA [None]
  - DEVICE OCCLUSION [None]
  - DIABETES MELLITUS [None]
  - DIZZINESS [None]
  - MALAISE [None]
